FAERS Safety Report 8801919 (Version 4)
Quarter: 2012Q4

REPORT INFORMATION
  Report Type: 
  Country: JP (occurrence: JP)
  Receive Date: 20120921
  Receipt Date: 20121227
  Transmission Date: 20130627
  Serious: Yes (Death, Life-Threatening, Other)
  Sender: FDA-Public Use
  Company Number: JP-GENZYME-THYM-1003420

PATIENT
  Age: 67 Year
  Sex: Male
  Weight: 58 kg

DRUGS (6)
  1. THYMOGLOBULINE [Suspect]
     Indication: APLASTIC ANAEMIA
     Dosage: 200 mg, qd
     Route: 042
     Dates: start: 20120913, end: 20120913
  2. METHYLPREDNISOLONE SODIUM SUCCINATE [Concomitant]
     Indication: PROPHYLAXIS
     Dosage: 125 mg, qd
     Route: 065
     Dates: start: 20120913
  3. METENOLONE ACETATE [Concomitant]
     Indication: APLASTIC ANAEMIA
     Dosage: 10 mg, bid
     Route: 065
     Dates: start: 20120511, end: 20120913
  4. FLUCONAZOLE [Concomitant]
     Indication: INFECTION PROPHYLAXIS
     Dosage: 200 mg, qd
     Dates: start: 20120705, end: 20120913
  5. SULFAMETHOPRIM [Concomitant]
     Indication: INFECTION PROPHYLAXIS
     Dosage: UNK DF, qd
     Route: 065
     Dates: start: 20120705, end: 20120913
  6. OMEPRAZOLE [Concomitant]
     Indication: INFECTION PROPHYLAXIS
     Dosage: 10 mg, qd
     Route: 065
     Dates: start: 20120618, end: 20120913

REACTIONS (5)
  - Ventricular flutter [Recovered/Resolved with Sequelae]
  - Loss of consciousness [Unknown]
  - Pyrexia [Recovered/Resolved]
  - Chills [Recovered/Resolved]
  - Haemorrhage [Fatal]
